FAERS Safety Report 4308486-8 (Version None)
Quarter: 2004Q1

REPORT INFORMATION
  Report Type: 
  Country: None (occurrence: None)
  Receive Date: 20040301
  Receipt Date: 20040223
  Transmission Date: 20041129
  Serious: Yes (Life-Threatening, Hospitalization)
  Sender: FDA-Public Use
  Company Number: GB-ROCHE-359773

PATIENT
  Age: 31 Year
  Sex: Female
  Weight: 61 kg

DRUGS (3)
  1. XENICAL [Suspect]
     Indication: OBESITY
     Route: 048
     Dates: start: 20020812, end: 20031001
  2. RANITIDINE [Suspect]
     Indication: DYSPEPSIA
     Route: 048
     Dates: start: 20031001, end: 20031020
  3. PROPRANOLOL [Concomitant]
     Indication: MIGRAINE
     Route: 048
     Dates: start: 20020515, end: 20031015

REACTIONS (3)
  - CHOLELITHIASIS [None]
  - DYSPEPSIA [None]
  - PANCREATITIS [None]
